FAERS Safety Report 22242461 (Version 1)
Quarter: 2023Q2

REPORT INFORMATION
  Report Type: Spontaneous
  Country: SE (occurrence: SE)
  Receive Date: 20230422
  Receipt Date: 20230422
  Transmission Date: 20230721
  Serious: Yes (Hospitalization)
  Sender: FDA-Public Use
  Company Number: None

PATIENT
  Age: 79 Year
  Sex: Female

DRUGS (7)
  1. ALLOPURINOL [Suspect]
     Active Substance: ALLOPURINOL
     Indication: Product used for unknown indication
     Dates: end: 20230217
  2. AMLODIPINE BESYLATE [Suspect]
     Active Substance: AMLODIPINE BESYLATE
     Indication: Product used for unknown indication
     Dates: end: 20230217
  3. ENALAPRIL [Suspect]
     Active Substance: ENALAPRIL
     Indication: Product used for unknown indication
     Dates: end: 20230217
  4. SPIRONOLACTONE [Suspect]
     Active Substance: SPIRONOLACTONE
     Indication: Product used for unknown indication
     Dates: end: 20230217
  5. FUROSEMIDE [Suspect]
     Active Substance: FUROSEMIDE
     Indication: Product used for unknown indication
     Dates: end: 20230217
  6. BRINTELLIX [Suspect]
     Active Substance: VORTIOXETINE HYDROBROMIDE
     Indication: Product used for unknown indication
     Dates: end: 20230217
  7. TRULICITY [Concomitant]
     Active Substance: DULAGLUTIDE
     Indication: Product used for unknown indication

REACTIONS (1)
  - Acute kidney injury [Unknown]

NARRATIVE: CASE EVENT DATE: 20230217
